FAERS Safety Report 7275733-2 (Version None)
Quarter: 2011Q1

REPORT INFORMATION
  Report Type: 
  Country: None (occurrence: None)
  Receive Date: 20110202
  Receipt Date: 20110202
  Transmission Date: 20110831
  Serious: Yes (Other)
  Sender: FDA-Public Use
  Company Number: None

PATIENT
  Sex: Female

DRUGS (5)
  1. CYCLOPHOSPHAMIDE [Suspect]
     Indication: BREAST CANCER
     Dosage: 600 MG Q2W IV
     Route: 042
     Dates: start: 20090708, end: 20090914
  2. HERCEPTIN [Suspect]
     Indication: BREAST CANCER
     Dosage: 4 MG, ONCE, IV
     Route: 042
     Dates: start: 20090928
  3. ADRIAMYCIN PFS [Suspect]
     Indication: BREAST CANCER
     Dosage: 60 MG/M2 Q2W
     Dates: start: 20090708, end: 20090914
  4. HERCEPTIN [Suspect]
     Indication: BREAST CANCER
     Dosage: 2 MG EVERY WEEK, IV
     Route: 042
     Dates: start: 20091005, end: 20100219
  5. PACLITAXEL [Suspect]
     Indication: BREAST CANCER
     Dosage: 175 MG/M2, EVERY 2 WEEKS, IV
     Route: 042
     Dates: start: 20090928, end: 20091209

REACTIONS (2)
  - LEFT VENTRICULAR DYSFUNCTION [None]
  - CARDIAC FAILURE CONGESTIVE [None]
